FAERS Safety Report 12600944 (Version 1)
Quarter: 2016Q3

REPORT INFORMATION
  Report Type: Spontaneous
  Country: US (occurrence: US)
  Receive Date: 20160728
  Receipt Date: 20160728
  Transmission Date: 20161109
  Serious: No
  Sender: FDA-Public Use
  Company Number: US-AUROBINDO-AUR-APU-2016-05286

PATIENT
  Age: 2 Year
  Sex: Male

DRUGS (1)
  1. TRIMETHOPRIM+SULFAMETHOXAZOLE SUSPENSION [Suspect]
     Active Substance: SULFAMETHOXAZOLE\TRIMETHOPRIM
     Indication: ARTHROPOD BITE
     Dosage: 7.5 ML, TWO TIMES A DAY
     Route: 048
     Dates: start: 20160418, end: 20160419

REACTIONS (3)
  - Incorrect product storage [None]
  - Off label use [Unknown]
  - No adverse event [Unknown]
